FAERS Safety Report 10798394 (Version 2)
Quarter: 2015Q1

REPORT INFORMATION
  Report Type: Spontaneous
  Country: DE (occurrence: DE)
  Receive Date: 20150216
  Receipt Date: 20150218
  Transmission Date: 20150721
  Serious: Yes (Other)
  Sender: FDA-Public Use
  Company Number: GXKR2015DE000944

PATIENT
  Age: 76 Year
  Sex: Male
  Weight: 125 kg

DRUGS (14)
  1. VALSARTAN 1 A PHARMA PLUS [Suspect]
     Active Substance: VALSARTAN
     Dosage: 1 DF, QD
     Route: 048
     Dates: start: 20140909, end: 201411
  2. SEEBRI [Concomitant]
     Active Substance: GLYCOPYRRONIUM
     Dosage: 1 DF, QD
  3. SIMVA [Concomitant]
  4. GABAPENTIN STADA [Concomitant]
  5. BLANEL [Concomitant]
     Dosage: 2 DF, QD
  6. LANSOPRAZOL STADA [Concomitant]
  7. INSUMAN INFUSAT [Concomitant]
  8. BISOPROLOL RATIOPHARM [Concomitant]
     Active Substance: BISOPROLOL
  9. RAMIPRIL RATIOPHARM [Concomitant]
  10. DUODART [Concomitant]
     Active Substance: DUTASTERIDE\TAMSULOSIN
  11. FALITHROM [Concomitant]
     Active Substance: PHENPROCOUMON
  12. ALLOPURINOL RATIOPHARM [Concomitant]
  13. METFORMIN ^RATIOPHARM^ [Concomitant]
  14. FELODIPIN RATIOPHARM [Concomitant]

REACTIONS (3)
  - Dyspnoea [Recovering/Resolving]
  - Tachycardia [Recovering/Resolving]
  - Asthenia [Recovering/Resolving]

NARRATIVE: CASE EVENT DATE: 20140909
